FAERS Safety Report 16451429 (Version 1)
Quarter: 2019Q2

REPORT INFORMATION
  Report Type: Report from Study
  Country: GB (occurrence: GB)
  Receive Date: 20190619
  Receipt Date: 20190619
  Transmission Date: 20190711
  Serious: Yes (Other)
  Sender: FDA-Public Use
  Company Number: GB-RECRO GAINESVILLE LLC-REPH-2019-000100

PATIENT

DRUGS (6)
  1. VERAPAMIL HYDROCHLORIDE SUSTAINED RELEASE [Suspect]
     Active Substance: VERAPAMIL HYDROCHLORIDE
     Dosage: 480 MILLIGRAM, QD FOR 3 DAYS
     Route: 048
  2. IFOSFAMIDE. [Concomitant]
     Active Substance: IFOSFAMIDE
     Indication: NON-SMALL CELL LUNG CANCER
     Dosage: 5 GRAM OVER 24 HOURS
     Route: 042
  3. MESNA. [Concomitant]
     Active Substance: MESNA
     Dosage: 1 GRAM OVER 8 HOURS FOLLOWING IFOSFAMIDE
     Route: 042
  4. MESNA. [Concomitant]
     Active Substance: MESNA
     Dosage: 3 GRAM ADMIXED WITH IFOSFAMIDE
     Route: 042
  5. VINDESINE [Concomitant]
     Active Substance: VINDESINE
     Indication: NON-SMALL CELL LUNG CANCER
     Dosage: 7 MILLIGRAM
     Route: 042
  6. MESNA. [Concomitant]
     Active Substance: MESNA
     Dosage: 1 GRAM PRIOR TO IFOSFAMIDE
     Route: 042

REACTIONS (1)
  - Ileus [Recovered/Resolved]
